FAERS Safety Report 4431025-8 (Version None)
Quarter: 2004Q3

REPORT INFORMATION
  Report Type: 
  Country: None (occurrence: None)
  Receive Date: 20040824
  Receipt Date: 20031113
  Transmission Date: 20050211
  Serious: No
  Sender: FDA-Public Use
  Company Number: US-BRISTOL-MYERS SQUIBB COMPANY-12435293

PATIENT
  Age: 81 Year
  Sex: Female
  Weight: 52 kg

DRUGS (3)
  1. MEGACE [Suspect]
     Indication: UTERINE CANCER
     Route: 048
     Dates: end: 20031001
  2. PROCARDIA [Concomitant]
  3. MULTIVITAMIN [Concomitant]

REACTIONS (2)
  - ANOREXIA [None]
  - OEDEMA PERIPHERAL [None]
